FAERS Safety Report 16386501 (Version 1)
Quarter: 2019Q2

REPORT INFORMATION
  Report Type: Spontaneous
  Country: BG (occurrence: BG)
  Receive Date: 20190604
  Receipt Date: 20190604
  Transmission Date: 20190711
  Serious: Yes (Hospitalization, Other)
  Sender: FDA-Public Use
  Company Number: BG-ASTRAZENECA-2019SE79663

PATIENT
  Age: 38 Year
  Sex: Male

DRUGS (5)
  1. BRILIQUE [Suspect]
     Active Substance: TICAGRELOR
     Route: 048
     Dates: start: 201809
  2. PANTOPRAZOLE [Concomitant]
     Active Substance: PANTOPRAZOLE
     Dosage: 20 MG 2X1 TABLET DAILY
  3. ACETYLSALICYLIC ACID [Concomitant]
     Active Substance: ASPIRIN
     Dosage: 100 MG 1 TABLET IN THE EVENING AFTER MEAL
  4. ROSUVASTATIN. [Concomitant]
     Active Substance: ROSUVASTATIN
     Dosage: 10 MG 1 TABLET DAILY DURING MEAL
  5. BISOPROLOL [Concomitant]
     Active Substance: BISOPROLOL
     Dosage: 5 MG 1 TABLET IN THE MORNING

REACTIONS (4)
  - Coronary artery stenosis [Unknown]
  - Angina unstable [Unknown]
  - Blood pressure abnormal [Unknown]
  - Vascular stent stenosis [Unknown]
